FAERS Safety Report 16033681 (Version 1)
Quarter: 2019Q2

REPORT INFORMATION
  Report Type: Spontaneous
  Country: US (occurrence: US)
  Receive Date: 20190305
  Receipt Date: 20190305
  Transmission Date: 20190711
  Serious: Yes (Other)
  Sender: FDA-Public Use
  Company Number: None

PATIENT
  Age: 44 Year
  Sex: Female
  Weight: 110.25 kg

DRUGS (1)
  1. LEVOFLOXICIN [Suspect]
     Active Substance: LEVOFLOXACIN
     Indication: URINARY TRACT INFECTION
     Route: 048
     Dates: start: 20050801, end: 20050802

REACTIONS (3)
  - Sensory disturbance [None]
  - Amnesia [None]
  - Headache [None]

NARRATIVE: CASE EVENT DATE: 20050801
